FAERS Safety Report 8791474 (Version 1)
Quarter: 2012Q4

REPORT INFORMATION
  Report Type: Spontaneous
  Country: US (occurrence: None)
  Receive Date: 20120914
  Receipt Date: 20120914
  Transmission Date: 20130627
  Serious: Yes (Hospitalization)
  Sender: FDA-Public Use
  Company Number: None

PATIENT
  Sex: Male

DRUGS (1)
  1. SUTENT [Suspect]
     Indication: NEOPLASM
     Dosage: 25 mg qd x 4 wks po  then off 2 weeks
     Dates: start: 20120409, end: 20120825

REACTIONS (3)
  - Blood glucose increased [None]
  - Vomiting [None]
  - Haemoptysis [None]
